FAERS Safety Report 7249856-8 (Version None)
Quarter: 2011Q1

REPORT INFORMATION
  Report Type: 
  Country: None (occurrence: None)
  Receive Date: 20110128
  Receipt Date: 20100608
  Transmission Date: 20110831
  Serious: No
  Sender: FDA-Public Use
  Company Number: A0866192A

PATIENT
  Sex: Female

DRUGS (1)
  1. WELLBUTRIN [Suspect]
     Route: 065

REACTIONS (3)
  - PRURITUS [None]
  - URTICARIA [None]
  - DRUG HYPERSENSITIVITY [None]
